FAERS Safety Report 4822677-9 (Version None)
Quarter: 2005Q4

REPORT INFORMATION
  Report Type: 
  Country: None (occurrence: None)
  Receive Date: 20051108
  Receipt Date: 20050819
  Transmission Date: 20060501
  Serious: Yes (Other)
  Sender: FDA-Public Use
  Company Number: J200502810

PATIENT
  Age: 35 Year
  Sex: Male
  Weight: 67 kg

DRUGS (10)
  1. CEFAZOLIN [Suspect]
     Indication: INFECTION PROPHYLAXIS
     Dosage: 1G PER DAY
     Route: 042
     Dates: start: 20050809, end: 20050809
  2. GASTER [Concomitant]
     Indication: NEOPLASM
     Dosage: 20MG PER DAY
     Route: 042
     Dates: start: 20050809, end: 20050809
  3. PROPOFOL [Concomitant]
     Dosage: 1200MG PER DAY
     Route: 042
     Dates: start: 20050809, end: 20050809
  4. BUPIVACAINE HCL [Concomitant]
     Dosage: 25ML PER DAY
     Route: 065
     Dates: start: 20050809, end: 20050809
  5. VECURONIUM BROMIDE [Concomitant]
     Dosage: 20MG PER DAY
     Route: 042
     Dates: start: 20050809, end: 20050809
  6. FENTANYL CITRATE [Concomitant]
     Dosage: .2MG PER DAY
     Route: 065
     Dates: start: 20050809, end: 20050809
  7. XYLOCAINE [Concomitant]
     Dates: start: 20050809, end: 20050809
  8. ATROPINE [Concomitant]
     Dates: start: 20050809, end: 20050809
  9. NEOSTIGMINE METHYLSULPHATE [Concomitant]
     Dates: start: 20050809, end: 20050809
  10. PENTCILLIN [Concomitant]
     Dates: start: 20050809, end: 20050810

REACTIONS (1)
  - HEPATIC FUNCTION ABNORMAL [None]
